FAERS Safety Report 16797509 (Version 1)
Quarter: 2019Q3

REPORT INFORMATION
  Report Type: Spontaneous
  Country: PT (occurrence: PT)
  Receive Date: 20190912
  Receipt Date: 20190912
  Transmission Date: 20191005
  Serious: Yes (Other)
  Sender: FDA-Public Use
  Company Number: PT-AUROBINDO-AUR-APL-2019-057666

PATIENT
  Age: 27 Year
  Sex: Female

DRUGS (1)
  1. AMOXICILLIN GENERIS TABLET [Suspect]
     Active Substance: AMOXICILLIN
     Indication: PRODUCT USED FOR UNKNOWN INDICATION
     Dosage: UNK
     Route: 048
     Dates: start: 201804

REACTIONS (4)
  - Pruritus generalised [Recovered/Resolved]
  - Wheezing [Recovered/Resolved]
  - Chest discomfort [Recovered/Resolved]
  - Rash generalised [Recovered/Resolved]

NARRATIVE: CASE EVENT DATE: 201804
